FAERS Safety Report 5662222-1 (Version None)
Quarter: 2008Q1

REPORT INFORMATION
  Report Type: 
  Country: None (occurrence: None)
  Receive Date: 20080312
  Receipt Date: 20050601
  Transmission Date: 20080703
  Serious: Yes (Hospitalization, Other)
  Sender: FDA-Public Use
  Company Number: KR-PFIZER INC-2005074408

PATIENT
  Sex: Male
  Weight: 64.6 kg

DRUGS (16)
  1. AZITHROMYCIN [Suspect]
     Indication: PNEUMONIA
     Route: 042
     Dates: start: 20041014, end: 20041015
  2. AZITHROMYCIN [Suspect]
     Route: 048
     Dates: start: 20041016, end: 20041021
  3. AZITHROMYCIN [Suspect]
     Dosage: DAILY DOSE:500MG-FREQ:UNKNOWN
     Route: 048
     Dates: start: 20041016, end: 20041021
  4. NETROMYCIN [Concomitant]
     Dosage: TEXT:UNKNOWN-FREQ:UNKNOWN
     Route: 042
     Dates: start: 20041014, end: 20041019
  5. CERADOLAN [Concomitant]
     Dosage: TEXT:UNKNOWN-FREQ:UNKNOWN
     Route: 042
     Dates: start: 20041014, end: 20041016
  6. FLUMARIN [Concomitant]
     Dosage: TEXT:UNKNOWN-FREQ:UNKNOWN
     Route: 042
     Dates: start: 20041020, end: 20041029
  7. CEFTAZIDIME PENTAHYDRATE [Concomitant]
     Dosage: TEXT:UNKNOWN-FREQ:UNKNOWN
     Dates: start: 20041016, end: 20041019
  8. ISEPACIN [Concomitant]
     Dosage: TEXT:UNKNOWN-FREQ:UNKNOWN
     Route: 042
     Dates: start: 20041020, end: 20041029
  9. LASIX [Concomitant]
     Dosage: TEXT:UNKNOWN-FREQ:UNKNOWN
     Route: 048
     Dates: start: 20041015, end: 20041015
  10. ALDACTONE [Concomitant]
     Dosage: TEXT:UNKNOWN-FREQ:UNKNOWN
     Route: 048
     Dates: start: 20041015, end: 20041015
  11. TAGAMET FOR INJECTION [Concomitant]
     Dosage: TEXT:UNKNOWN-FREQ:UNKNOWN
     Route: 042
     Dates: start: 20041019, end: 20041022
  12. ACETYLCYSTEINE [Concomitant]
     Dosage: TEXT:UNKNOWN-FREQ:UNKNOWN
     Route: 042
     Dates: start: 20041019, end: 20041022
  13. DIGESTIVES, INCL ENZYMES [Concomitant]
     Dosage: TEXT:UNKNOWN-FREQ:UNKNOWN
     Route: 048
     Dates: start: 20041020, end: 20041021
  14. TALNIFLUMATE [Concomitant]
     Dosage: TEXT:UNKNOWN-FREQ:UNKNOWN
     Route: 048
     Dates: start: 20041020, end: 20041021
  15. BISOLVON [Concomitant]
     Dosage: TEXT:UNKNOWN-FREQ:UNKNOWN
     Route: 048
     Dates: start: 20041020, end: 20041029
  16. TRIDOL [Concomitant]
     Dosage: TEXT:UNKNOWN-FREQ:UNKNOWN
     Route: 030
     Dates: start: 20041018, end: 20041020

REACTIONS (2)
  - DRUG INEFFECTIVE [None]
  - TUBERCULOUS PLEURISY [None]
